FAERS Safety Report 5135197-1 (Version None)
Quarter: 2006Q4

REPORT INFORMATION
  Report Type: 
  Country: None (occurrence: None)
  Receive Date: 20061025
  Receipt Date: 20061025
  Transmission Date: 20070319
  Serious: Yes (Hospitalization)
  Sender: FDA-Public Use
  Company Number: None

PATIENT
  Age: 11 Year
  Sex: Male
  Weight: 31.7518 kg

DRUGS (1)
  1. GEODON [Suspect]
     Dosage: SEE IMAGE
     Route: 048
     Dates: start: 20031112, end: 20040112

REACTIONS (3)
  - DRUG HYPERSENSITIVITY [None]
  - STEVENS-JOHNSON SYNDROME [None]
  - TARDIVE DYSKINESIA [None]
